FAERS Safety Report 4483622-1 (Version None)
Quarter: 2004Q4

REPORT INFORMATION
  Report Type: 
  Country: None (occurrence: None)
  Receive Date: 20041021
  Receipt Date: 20041021
  Transmission Date: 20050328
  Serious: Yes (Hospitalization)
  Sender: FDA-Public Use
  Company Number: None

PATIENT
  Age: 80 Year
  Sex: Male
  Weight: 52.6 kg

DRUGS (8)
  1. CLARITIN [Suspect]
  2. ACETAMINOPHEN (INPT-UD) TAB [Concomitant]
  3. AMOXICILLIN 500/ CLAVULANATE [Concomitant]
  4. HALOPERIDOL DECANOATE INJ [Concomitant]
  5. MAGNESIUM HYDROXIDE SUSP [Concomitant]
  6. TERAZOSIN CAP [Concomitant]
  7. SERTRALINE TAB [Concomitant]
  8. FINASTERIDE TAB [Concomitant]

REACTIONS (2)
  - DIZZINESS [None]
  - FALL [None]
